FAERS Safety Report 6897588-8 (Version None)
Quarter: 2010Q3

REPORT INFORMATION
  Report Type: 
  Country: None (occurrence: None)
  Receive Date: 20100802
  Receipt Date: 20070627
  Transmission Date: 20110219
  Serious: No
  Sender: FDA-Public Use
  Company Number: US-PFIZER INC-2007053558

PATIENT
  Sex: Female
  Weight: 59.09 kg

DRUGS (2)
  1. LYRICA [Suspect]
     Indication: NEUROPATHY PERIPHERAL
     Dates: start: 20070201
  2. REQUIP [Concomitant]

REACTIONS (3)
  - BLOOD BLISTER [None]
  - RASH [None]
  - SKIN LESION [None]
